FAERS Safety Report 23480322 (Version 1)
Quarter: 2024Q1

REPORT INFORMATION
  Report Type: Spontaneous
  Country: DE (occurrence: DE)
  Receive Date: 20240205
  Receipt Date: 20240205
  Transmission Date: 20240410
  Serious: No
  Sender: FDA-Public Use
  Company Number: None

PATIENT
  Age: 27 Year
  Sex: Female
  Weight: 47 kg

DRUGS (3)
  1. EZETIMIBE [Suspect]
     Active Substance: EZETIMIBE
     Indication: Blood cholesterol increased
     Dosage: 10 MILLIGRAM
     Route: 048
  2. EZETIMIBE [Suspect]
     Active Substance: EZETIMIBE
     Dosage: 10 MILLIGRAM
     Route: 048
  3. EZETIMIBE [Suspect]
     Active Substance: EZETIMIBE
     Dosage: UNK (RESTARTED DOSE)
     Route: 065

REACTIONS (2)
  - Abdominal distension [Recovered/Resolved]
  - Abdominal discomfort [Recovered/Resolved]

NARRATIVE: CASE EVENT DATE: 20210101
